FAERS Safety Report 23079282 (Version 1)
Quarter: 2023Q4

REPORT INFORMATION
  Report Type: Spontaneous
  Country: US (occurrence: US)
  Receive Date: 20231018
  Receipt Date: 20231018
  Transmission Date: 20240110
  Serious: Yes (Death)
  Sender: FDA-Public Use
  Company Number: US-PFIZER INC-202200239140

PATIENT
  Age: 88 Year
  Sex: Female

DRUGS (2)
  1. TIKOSYN [Suspect]
     Active Substance: DOFETILIDE
     Indication: Atrial fibrillation
     Dosage: 1 CAP BY MOUTH EVERY MORNING AND 2 CAPS DAILY AT BEDTIME
     Route: 048
  2. TIKOSYN [Suspect]
     Active Substance: DOFETILIDE
     Dosage: 125 UG, 2X/DAY (125 MCG, 1 CAP BY MOUTH, TWICE A DAY)
     Route: 048

REACTIONS (2)
  - Death [Fatal]
  - Off label use [Unknown]
